APPROVED DRUG PRODUCT: LANSOPRAZOLE
Active Ingredient: LANSOPRAZOLE
Strength: 15MG
Dosage Form/Route: TABLET, ORALLY DISINTEGRATING, DELAYED RELEASE;ORAL
Application: N208025 | Product #001
Applicant: DEXCEL PHARMA TECHNOLOGIES LTD
Approved: Jun 7, 2016 | RLD: No | RS: No | Type: OTC

PATENTS:
Patent 11077055 | Expires: Apr 21, 2036
Patent 11986554 | Expires: Apr 21, 2036